FAERS Safety Report 21620037 (Version 1)
Quarter: 2022Q4

REPORT INFORMATION
  Report Type: Report from Study
  Country: GB (occurrence: GB)
  Receive Date: 20221121
  Receipt Date: 20221121
  Transmission Date: 20230113
  Serious: Yes (Other)
  Sender: FDA-Public Use
  Company Number: GB-CELLTRION INC.-2022GB019211

PATIENT

DRUGS (68)
  1. TRASTUZUMAB [Suspect]
     Active Substance: TRASTUZUMAB
     Indication: Breast cancer metastatic
     Dosage: 450 MILLIGRAM, EVERY 3 WEEKS
     Route: 042
     Dates: start: 20160310, end: 20160804
  2. TRASTUZUMAB [Suspect]
     Active Substance: TRASTUZUMAB
     Dosage: 450 MILLIGRAM, EVERY 3 WEEKS
     Route: 042
     Dates: start: 20160310, end: 20160804
  3. TRASTUZUMAB [Suspect]
     Active Substance: TRASTUZUMAB
     Dosage: 450 MILLIGRAM, EVERY 3 WEEKS
     Route: 042
     Dates: start: 20160310, end: 20160804
  4. TRASTUZUMAB [Suspect]
     Active Substance: TRASTUZUMAB
     Dosage: 450 MILLIGRAM, EVERY 3 WEEKS
     Route: 042
     Dates: start: 20160310, end: 20160804
  5. TRASTUZUMAB [Suspect]
     Active Substance: TRASTUZUMAB
     Dosage: 450 MILLIGRAM, EVERY 3 WEEKS
     Route: 042
     Dates: start: 20160310, end: 20160804
  6. TRASTUZUMAB [Suspect]
     Active Substance: TRASTUZUMAB
     Dosage: 336 MILLIGRAM, EVERY 3 WEEKS
     Route: 042
     Dates: start: 20200515, end: 20200918
  7. TRASTUZUMAB [Suspect]
     Active Substance: TRASTUZUMAB
     Dosage: 336 MILLIGRAM, EVERY 3 WEEKS
     Route: 042
     Dates: start: 20200515, end: 20200918
  8. TRASTUZUMAB [Suspect]
     Active Substance: TRASTUZUMAB
     Dosage: 336 MILLIGRAM, EVERY 3 WEEKS
     Route: 042
     Dates: start: 20200515, end: 20200918
  9. TRASTUZUMAB [Suspect]
     Active Substance: TRASTUZUMAB
     Dosage: 336 MILLIGRAM, EVERY 3 WEEKS
     Route: 042
     Dates: start: 20200515, end: 20200918
  10. TRASTUZUMAB [Suspect]
     Active Substance: TRASTUZUMAB
     Dosage: 336 MILLIGRAM, EVERY 3 WEEKS
     Route: 042
     Dates: start: 20200515, end: 20200918
  11. TRASTUZUMAB [Suspect]
     Active Substance: TRASTUZUMAB
     Dosage: 378 MILLIGRAM, EVERY 3 WEEKS
     Route: 042
     Dates: start: 20201009, end: 20211224
  12. TRASTUZUMAB [Suspect]
     Active Substance: TRASTUZUMAB
     Dosage: 378 MILLIGRAM, EVERY 3 WEEKS
     Route: 042
     Dates: start: 20201009, end: 20211224
  13. TRASTUZUMAB [Suspect]
     Active Substance: TRASTUZUMAB
     Dosage: 378 MILLIGRAM, EVERY 3 WEEKS
     Route: 042
     Dates: start: 20201009, end: 20211224
  14. TRASTUZUMAB [Suspect]
     Active Substance: TRASTUZUMAB
     Dosage: 378 MILLIGRAM, EVERY 3 WEEKS
     Route: 042
     Dates: start: 20201009, end: 20211224
  15. TRASTUZUMAB [Suspect]
     Active Substance: TRASTUZUMAB
     Dosage: 378 MILLIGRAM, EVERY 3 WEEKS
     Route: 042
     Dates: start: 20201009, end: 20211224
  16. TRASTUZUMAB [Suspect]
     Active Substance: TRASTUZUMAB
     Dosage: 441 MILLIGRAM, EVERY 3 WEEKS
     Route: 042
     Dates: start: 20180726, end: 20200103
  17. TRASTUZUMAB [Suspect]
     Active Substance: TRASTUZUMAB
     Dosage: 441 MILLIGRAM, EVERY 3 WEEKS
     Route: 042
     Dates: start: 20180726, end: 20200103
  18. TRASTUZUMAB [Suspect]
     Active Substance: TRASTUZUMAB
     Dosage: 441 MILLIGRAM, EVERY 3 WEEKS
     Route: 042
     Dates: start: 20180726, end: 20200103
  19. TRASTUZUMAB [Suspect]
     Active Substance: TRASTUZUMAB
     Dosage: 441 MILLIGRAM, EVERY 3 WEEKS
     Route: 042
     Dates: start: 20180726, end: 20200103
  20. TRASTUZUMAB [Suspect]
     Active Substance: TRASTUZUMAB
     Dosage: 441 MILLIGRAM, EVERY 3 WEEKS
     Route: 042
     Dates: start: 20180726, end: 20200103
  21. TRASTUZUMAB [Suspect]
     Active Substance: TRASTUZUMAB
     Dosage: 525 MILLIGRAM, EVERY 3 WEEKS
     Route: 042
     Dates: start: 20160128, end: 20160218
  22. TRASTUZUMAB [Suspect]
     Active Substance: TRASTUZUMAB
     Dosage: 525 MILLIGRAM, EVERY 3 WEEKS
     Route: 042
     Dates: start: 20160128, end: 20160218
  23. TRASTUZUMAB [Suspect]
     Active Substance: TRASTUZUMAB
     Dosage: 525 MILLIGRAM, EVERY 3 WEEKS
     Route: 042
     Dates: start: 20160128, end: 20160218
  24. TRASTUZUMAB [Suspect]
     Active Substance: TRASTUZUMAB
     Dosage: 525 MILLIGRAM, EVERY 3 WEEKS
     Route: 042
     Dates: start: 20160128, end: 20160218
  25. TRASTUZUMAB [Suspect]
     Active Substance: TRASTUZUMAB
     Dosage: 525 MILLIGRAM, EVERY 3 WEEKS
     Route: 042
     Dates: start: 20160128, end: 20160218
  26. TRASTUZUMAB [Suspect]
     Active Substance: TRASTUZUMAB
     Dosage: 378 MILLIGRAM, EVERY 3 WEEKS
     Route: 042
     Dates: start: 20200124, end: 20200424
  27. TRASTUZUMAB [Suspect]
     Active Substance: TRASTUZUMAB
     Dosage: 378 MILLIGRAM, EVERY 3 WEEKS
     Route: 042
     Dates: start: 20200124, end: 20200424
  28. TRASTUZUMAB [Suspect]
     Active Substance: TRASTUZUMAB
     Dosage: 378 MILLIGRAM, EVERY 3 WEEKS
     Route: 042
     Dates: start: 20200124, end: 20200424
  29. TRASTUZUMAB [Suspect]
     Active Substance: TRASTUZUMAB
     Dosage: 378 MILLIGRAM, EVERY 3 WEEKS
     Route: 042
     Dates: start: 20200124, end: 20200424
  30. TRASTUZUMAB [Suspect]
     Active Substance: TRASTUZUMAB
     Dosage: 378 MILLIGRAM, EVERY 3 WEEKS
     Route: 042
     Dates: start: 20200124, end: 20200424
  31. TRASTUZUMAB [Suspect]
     Active Substance: TRASTUZUMAB
     Dosage: 675 MILLIGRAM, EVERY 3 WEEKS
     Route: 042
     Dates: start: 20160104, end: 20160104
  32. TRASTUZUMAB [Suspect]
     Active Substance: TRASTUZUMAB
     Dosage: 675 MILLIGRAM, EVERY 3 WEEKS
     Route: 042
     Dates: start: 20160104, end: 20160104
  33. TRASTUZUMAB [Suspect]
     Active Substance: TRASTUZUMAB
     Dosage: 675 MILLIGRAM, EVERY 3 WEEKS
     Route: 042
     Dates: start: 20160104, end: 20160104
  34. TRASTUZUMAB [Suspect]
     Active Substance: TRASTUZUMAB
     Dosage: 675 MILLIGRAM, EVERY 3 WEEKS
     Route: 042
     Dates: start: 20160104, end: 20160104
  35. TRASTUZUMAB [Suspect]
     Active Substance: TRASTUZUMAB
     Dosage: 675 MILLIGRAM, EVERY 3 WEEKS
     Route: 042
     Dates: start: 20160104, end: 20160104
  36. TRASTUZUMAB [Suspect]
     Active Substance: TRASTUZUMAB
     Dosage: 400 MILLIGRAM, EVERY 3 WEEKS
     Route: 042
     Dates: start: 20160825, end: 20180705
  37. TRASTUZUMAB [Suspect]
     Active Substance: TRASTUZUMAB
     Dosage: 400 MILLIGRAM, EVERY 3 WEEKS
     Route: 042
     Dates: start: 20160825, end: 20180705
  38. TRASTUZUMAB [Suspect]
     Active Substance: TRASTUZUMAB
     Dosage: 400 MILLIGRAM, EVERY 3 WEEKS
     Route: 042
     Dates: start: 20160825, end: 20180705
  39. TRASTUZUMAB [Suspect]
     Active Substance: TRASTUZUMAB
     Dosage: 400 MILLIGRAM, EVERY 3 WEEKS
     Route: 042
     Dates: start: 20160825, end: 20180705
  40. TRASTUZUMAB [Suspect]
     Active Substance: TRASTUZUMAB
     Dosage: 400 MILLIGRAM, EVERY 3 WEEKS
     Route: 042
     Dates: start: 20160825, end: 20180705
  41. ANASTROZOLE [Suspect]
     Active Substance: ANASTROZOLE
     Indication: Breast cancer metastatic
     Dosage: 1 MG, QD
     Route: 048
     Dates: start: 20211130
  42. DOCETAXEL [Suspect]
     Active Substance: DOCETAXEL
     Indication: Breast cancer metastatic
     Dosage: 140 MILLIGRAM, EVERY 3 WEEKS
     Route: 042
     Dates: start: 20160105, end: 20160310
  43. DOCETAXEL [Suspect]
     Active Substance: DOCETAXEL
     Dosage: 148 MILLIGRAM, EVERY 3 WEEKS
     Route: 042
     Dates: start: 20160310, end: 20160310
  44. LETROZOLE [Suspect]
     Active Substance: LETROZOLE
     Indication: Breast cancer metastatic
     Dosage: 2.5 MICROGRAM, QD
     Route: 048
     Dates: start: 20160329, end: 20200602
  45. PERTUZUMAB [Suspect]
     Active Substance: PERTUZUMAB
     Indication: Breast cancer metastatic
     Dosage: 840 MILLIGRAM, EVERY 3 WEEKS
     Route: 042
     Dates: start: 20160104, end: 20160128
  46. PERTUZUMAB [Suspect]
     Active Substance: PERTUZUMAB
     Dosage: 420 MILLLIGRAM, EVERY 3 WEEKS
     Route: 042
     Dates: start: 20160218, end: 20211224
  47. TAMOXIFEN [Suspect]
     Active Substance: TAMOXIFEN
     Indication: Breast cancer metastatic
     Dosage: 20 MILLIGRAM, QD
     Route: 048
     Dates: start: 20200606, end: 20211130
  48. ADO-TRASTUZUMAB EMTANSINE [Suspect]
     Active Substance: ADO-TRASTUZUMAB EMTANSINE
     Indication: Breast cancer metastatic
     Dosage: 200 MILLIGRAM, EVERY 3 WEEKS
     Route: 042
     Dates: start: 20220225
  49. ADO-TRASTUZUMAB EMTANSINE [Suspect]
     Active Substance: ADO-TRASTUZUMAB EMTANSINE
     Dosage: 240 MILLIGRAM, EVERY 3 WEEKS
     Route: 042
     Dates: start: 20220114, end: 20220204
  50. ASTRAZENECA COVID-19 VACCINE [Concomitant]
     Active Substance: AZD-1222
     Dosage: FIRST DOSE SECOND DOSE IN 12 WEEKS
     Route: 030
     Dates: start: 20210131, end: 20210131
  51. CALCIUM\CHOLECALCIFEROL [Concomitant]
     Active Substance: CALCIUM\CHOLECALCIFEROL
     Dosage: 1 TABLET
     Route: 048
     Dates: start: 20160101
  52. CALCIUM [Concomitant]
     Active Substance: CALCIUM
     Indication: Hypocalcaemia
     Dosage: UNK
     Route: 048
     Dates: start: 20160321
  53. AMOXICILLIN\CLAVULANATE POTASSIUM [Concomitant]
     Active Substance: AMOXICILLIN\CLAVULANATE POTASSIUM
     Indication: Urinary tract infection
     Dosage: 375 MILLIGRAM, QD
     Route: 048
     Dates: start: 20220504, end: 20220510
  54. DENOSUMAB [Concomitant]
     Active Substance: DENOSUMAB
     Dosage: 120 MILLIGRAM, EVERY 3 WEEKS
     Route: 042
     Dates: start: 20151201
  55. DEXAMETHASONE [Concomitant]
     Active Substance: DEXAMETHASONE
     Indication: Paraesthesia
     Dosage: 4 MILLIGRAM, QD
     Route: 048
     Dates: start: 20211130
  56. DEXAMETHASONE [Concomitant]
     Active Substance: DEXAMETHASONE
     Indication: Anal incontinence
     Dosage: 16 MILLIGRAM
     Route: 048
     Dates: start: 20160127, end: 20160129
  57. DEXAMETHASONE [Concomitant]
     Active Substance: DEXAMETHASONE
     Dosage: 8 MILLIGRAM, QD
     Route: 048
     Dates: start: 20211116, end: 20211122
  58. DEXAMETHASONE [Concomitant]
     Active Substance: DEXAMETHASONE
     Dosage: 2 MILLIGRAM, QD
     Route: 048
     Dates: start: 20220113, end: 20220225
  59. DEXAMETHASONE [Concomitant]
     Active Substance: DEXAMETHASONE
     Dosage: 16 MILLIGRAM, QD
     Route: 048
     Dates: start: 20160103, end: 20160105
  60. DEXAMETHASONE [Concomitant]
     Active Substance: DEXAMETHASONE
     Dosage: 8 MILLIGRAM, QD
     Route: 048
     Dates: start: 20211123, end: 20211129
  61. DEXAMETHASONE [Concomitant]
     Active Substance: DEXAMETHASONE
     Dosage: 1 MILLIGRAM, QD
     Route: 048
     Dates: start: 20220225, end: 20220225
  62. DOMPERIDONE [Concomitant]
     Active Substance: DOMPERIDONE
     Indication: Nausea
     Dosage: 30 MILLIGRAM, QD
     Route: 048
     Dates: start: 20151230
  63. DOMPERIDONE [Concomitant]
     Active Substance: DOMPERIDONE
     Dosage: 10 MILLIGRAM, AS NECESSARY
     Route: 048
     Dates: start: 20160129
  64. HYDROCORTISONE [Concomitant]
     Active Substance: HYDROCORTISONE
     Indication: Rash
     Dosage: UNK, QD
     Route: 061
     Dates: start: 20160301
  65. LANSOPRAZOLE [Concomitant]
     Active Substance: LANSOPRAZOLE
     Dosage: 30 MILLIGRAM, QD
     Route: 048
     Dates: start: 20151229, end: 20160105
  66. LOPERAMIDE [Concomitant]
     Active Substance: LOPERAMIDE
     Indication: Diarrhoea
     Dosage: 2 MILLIGRAM, AS NECESSARY
     Route: 048
     Dates: start: 20160122
  67. MAGNESIUM GLYCEROPHOSPHATE [Concomitant]
     Active Substance: MAGNESIUM GLYCEROPHOSPHATE
     Indication: Hypomagnesaemia
     Dosage: 8 MMOL
     Route: 048
     Dates: start: 20160321
  68. NITROFURANTOIN [Concomitant]
     Active Substance: NITROFURANTOIN
     Indication: Urinary tract infection
     Dosage: UNK
     Route: 048
     Dates: start: 20220429, end: 20220503

REACTIONS (1)
  - Neuropathy peripheral [Not Recovered/Not Resolved]

NARRATIVE: CASE EVENT DATE: 20220222
